FAERS Safety Report 18082421 (Version 1)
Quarter: 2020Q3

REPORT INFORMATION
  Report Type: Report from Study
  Country: US (occurrence: US)
  Receive Date: 20200728
  Receipt Date: 20200728
  Transmission Date: 20201103
  Serious: Yes (Hospitalization, Other)
  Sender: FDA-Public Use
  Company Number: US-ACTELION-A-NJ2015-119821

PATIENT
  Age: 61 Year
  Sex: Female

DRUGS (3)
  1. ASPIRIN. [Concomitant]
     Active Substance: ASPIRIN
  2. OPSUMIT [Suspect]
     Active Substance: MACITENTAN
     Indication: PULMONARY HYPERTENSION
     Dosage: 10 MG, QD
     Route: 048
     Dates: start: 20141121
  3. PREDNISONE. [Suspect]
     Active Substance: PREDNISONE
     Indication: SARCOIDOSIS
     Dosage: UNK
     Route: 065
     Dates: start: 20150609, end: 20150613

REACTIONS (29)
  - Wheezing [Recovered/Resolved]
  - Oedema peripheral [Unknown]
  - Internal haemorrhage [Unknown]
  - Asthma [Recovered/Resolved]
  - Respiratory tract infection [Not Recovered/Not Resolved]
  - Deep vein thrombosis [Unknown]
  - Haemorrhage [Not Recovered/Not Resolved]
  - Chest pain [Unknown]
  - Pneumonia [Recovered/Resolved]
  - Oesophageal candidiasis [Unknown]
  - Hypokalaemia [Recovered/Resolved]
  - Orthopnoea [Unknown]
  - Renal failure [Unknown]
  - Dyspnoea [Recovered/Resolved]
  - Vomiting [Unknown]
  - Dizziness [Recovered/Resolved]
  - Acute kidney injury [Recovering/Resolving]
  - Transfusion [Unknown]
  - Abdominal pain [Recovering/Resolving]
  - Hyponatraemia [Recovered/Resolved]
  - Aspartate aminotransferase increased [Recovered/Resolved]
  - Cough [Unknown]
  - Asthenia [Unknown]
  - Blood loss anaemia [Not Recovered/Not Resolved]
  - Productive cough [Unknown]
  - Throat irritation [Unknown]
  - Fluid retention [Unknown]
  - Multiple allergies [Unknown]
  - Cerebrovascular accident [Recovered/Resolved]

NARRATIVE: CASE EVENT DATE: 20150606
